FAERS Safety Report 11008982 (Version 3)
Quarter: 2015Q2

REPORT INFORMATION
  Report Type: Report from Study
  Country: IT (occurrence: IT)
  Receive Date: 20150410
  Receipt Date: 20150529
  Transmission Date: 20150821
  Serious: Yes (Hospitalization)
  Sender: FDA-Public Use
  Company Number: IT-ROCHE-1561993

PATIENT
  Age: 66 Year
  Sex: Male

DRUGS (6)
  1. CHLORAMBUCIL [Suspect]
     Active Substance: CHLORAMBUCIL
     Indication: LYMPHOCYTIC LEUKAEMIA
     Dosage: THE LAST DOSE PRIOR TO THE FEBRILE NEUTROPENIA WAS ADMINISTERED ON 01/APR/2015.
     Route: 065
     Dates: start: 20150401
  2. NOREMIFA [Concomitant]
     Active Substance: DIMETHICONE\MAGNESIUM ALGINATE\SILICON DIOXIDE\SODIUM ALGINATE
     Route: 065
  3. OBINUTUZUMAB [Suspect]
     Active Substance: OBINUTUZUMAB
     Indication: LYMPHOCYTIC LEUKAEMIA
     Dosage: THE LAST DOSE PRIOR TO THE FEBRILE NEUTROPENIA WAS ADMINISTERED ON 02/APR/2015. IT WAS FIRST DELAYED
     Route: 065
     Dates: start: 20150401, end: 20150408
  4. ZEFFIX [Concomitant]
     Active Substance: LAMIVUDINE
     Route: 065
  5. ZYLORIC [Concomitant]
     Active Substance: ALLOPURINOL
     Route: 065
  6. NOVONORM [Concomitant]
     Active Substance: REPAGLINIDE
     Route: 065

REACTIONS (3)
  - Anaemia [Recovered/Resolved]
  - Thrombocytopenia [Recovered/Resolved]
  - Febrile neutropenia [Not Recovered/Not Resolved]

NARRATIVE: CASE EVENT DATE: 20150405
